FAERS Safety Report 6096997-7 (Version None)
Quarter: 2009Q1

REPORT INFORMATION
  Report Type: 
  Country: None (occurrence: None)
  Receive Date: 20090227
  Receipt Date: 20090213
  Transmission Date: 20090719
  Serious: Yes (Hospitalization)
  Sender: FDA-Public Use
  Company Number: PHHY2009DE05767

PATIENT
  Age: 82 Year
  Sex: Female

DRUGS (1)
  1. PROVAS [Suspect]
     Dosage: UNK
     Dates: start: 20060601

REACTIONS (1)
  - PULMONARY FIBROSIS [None]
